FAERS Safety Report 8775400 (Version 3)
Quarter: 2012Q4

REPORT INFORMATION
  Report Type: 
  Country: GB (occurrence: GB)
  Receive Date: 20120910
  Receipt Date: 20121119
  Transmission Date: 20130627
  Serious: Yes (Death, Hospitalization, Other)
  Sender: FDA-Public Use
  Company Number: GB-ROCHE-1120003

PATIENT
  Age: 74 Year
  Sex: Male

DRUGS (6)
  1. MABTHERA [Suspect]
     Indication: RHEUMATOID ARTHRITIS
     Route: 065
  2. METHOTREXATE [Concomitant]
     Route: 049
     Dates: start: 2002
  3. SULPHASALAZINE [Concomitant]
     Route: 048
     Dates: start: 1997
  4. HYDROXYCHLOROQUINE [Concomitant]
     Route: 048
     Dates: start: 2004
  5. TUMOR NECROSIS FACTOR NOS [Concomitant]
     Route: 048
     Dates: start: 2004
  6. TUMOR NECROSIS FACTOR NOS [Concomitant]
     Route: 065
     Dates: start: 2005

REACTIONS (3)
  - Death [Fatal]
  - Progressive multifocal leukoencephalopathy [Unknown]
  - Asthenia [Unknown]
